FAERS Safety Report 26203449 (Version 1)
Quarter: 2025Q4

REPORT INFORMATION
  Report Type: Spontaneous
  Country: US (occurrence: None)
  Receive Date: 20251223
  Receipt Date: 20251223
  Transmission Date: 20260118
  Serious: Yes (Other)
  Sender: FDA-CTU
  Company Number: None

PATIENT
  Age: 58 Year
  Sex: Female
  Weight: 60.75 kg

DRUGS (5)
  1. MONISTAT 3 [Suspect]
     Active Substance: MICONAZOLE NITRATE
     Indication: Vulvovaginal mycotic infection
     Dosage: OTHER QUANTITY : 3 VAGINAL APPLICATOR;?FREQUENCY : DAILY;
     Route: 067
     Dates: start: 20251220, end: 20251222
  2. PROGESTERONE [Concomitant]
     Active Substance: PROGESTERONE
  3. ESTRADIOL [Concomitant]
     Active Substance: ESTRADIOL
  4. TESTOSTERONE [Concomitant]
     Active Substance: TESTOSTERONE
  5. MAGNESIUM [Concomitant]
     Active Substance: MAGNESIUM

REACTIONS (7)
  - Vulvovaginal discomfort [None]
  - Vulvovaginal pruritus [None]
  - Vulvovaginal burning sensation [None]
  - Vulvovaginal swelling [None]
  - Dysuria [None]
  - Dermatitis contact [None]
  - Chemical burn of genitalia [None]

NARRATIVE: CASE EVENT DATE: 20251221
